FAERS Safety Report 7637298-2 (Version None)
Quarter: 2011Q3

REPORT INFORMATION
  Report Type: 
  Country: None (occurrence: None)
  Receive Date: 20110726
  Receipt Date: 20110725
  Transmission Date: 20111222
  Serious: Yes (Other)
  Sender: FDA-Public Use
  Company Number: US-BAYER-2011-064323

PATIENT
  Age: 76 Year
  Sex: Male

DRUGS (4)
  1. KLONOPIN [Concomitant]
     Indication: SLEEP TERROR
     Dosage: 0.5 MG, UNK
  2. LEVITRA [Suspect]
     Indication: ERECTILE DYSFUNCTION
     Dosage: 20 MG, TIW
     Route: 048
     Dates: start: 20100701, end: 20110723
  3. SALPALMETO [Concomitant]
     Indication: PROSTATOMEGALY
  4. ENDURAL [Concomitant]
     Indication: TREMOR
     Dosage: 60 MG, UNK

REACTIONS (3)
  - EYE IRRITATION [None]
  - OCULAR HYPERAEMIA [None]
  - BLINDNESS [None]
